FAERS Safety Report 6604026-9 (Version None)
Quarter: 2010Q1

REPORT INFORMATION
  Report Type: 
  Country: None (occurrence: None)
  Receive Date: 20100226
  Receipt Date: 20090417
  Transmission Date: 20100710
  Serious: No
  Sender: FDA-Public Use
  Company Number: A0779413A

PATIENT
  Age: 41 Year
  Sex: Male

DRUGS (6)
  1. LAMICTAL CD [Suspect]
     Indication: BIPOLAR DISORDER
     Dosage: 200MG TWICE PER DAY
     Route: 048
     Dates: start: 20080101
  2. FLUOXETINE [Concomitant]
  3. CLONAZEPAM [Concomitant]
  4. BUPROPION HCL [Concomitant]
  5. ENALAPRIL MALEATE [Concomitant]
  6. GEMFIBROZIL [Concomitant]

REACTIONS (4)
  - ILL-DEFINED DISORDER [None]
  - INCONTINENCE [None]
  - RESIDUAL URINE [None]
  - URINARY INCONTINENCE [None]
